FAERS Safety Report 16973301 (Version 17)
Quarter: 2025Q3

REPORT INFORMATION
  Report Type: Report from Study
  Country: JP (occurrence: JP)
  Receive Date: 20191030
  Receipt Date: 20250919
  Transmission Date: 20251020
  Serious: Yes (Hospitalization, Other)
  Sender: ABBVIE
  Company Number: JP-TAKEDA-2019TJP024591

PATIENT
  Age: 44 Year
  Sex: Male
  Weight: 61.8 kg

DRUGS (4)
  1. LEUPROLIDE ACETATE [Suspect]
     Active Substance: LEUPROLIDE ACETATE
     Indication: Bulbospinal muscular atrophy congenital
     Dosage: 11.25 MILLIGRAM, Q3MONTHS
     Route: 058
     Dates: start: 20180804
  2. PACLITAXEL [Concomitant]
     Active Substance: PACLITAXEL
     Indication: Product used for unknown indication
     Route: 065
     Dates: start: 20231128, end: 20240115
  3. CARBOPLATIN [Concomitant]
     Active Substance: CARBOPLATIN
     Indication: Product used for unknown indication
     Route: 065
     Dates: start: 20231128, end: 20240115
  4. IMFINZI [Concomitant]
     Active Substance: DURVALUMAB
     Indication: Product used for unknown indication
     Route: 065
     Dates: start: 20240209

REACTIONS (8)
  - Lung adenocarcinoma [Not Recovered/Not Resolved]
  - Tibia fracture [Recovered/Resolved with Sequelae]
  - Fibula fracture [Recovered/Resolved with Sequelae]
  - Fall [Recovered/Resolved with Sequelae]
  - Male sexual dysfunction [Not Recovered/Not Resolved]
  - Lipid metabolism disorder [Recovered/Resolved]
  - Hepatic function abnormal [Recovered/Resolved]
  - Pneumothorax [Recovered/Resolved]

NARRATIVE: CASE EVENT DATE: 20190716
